FAERS Safety Report 5911272-6 (Version None)
Quarter: 2008Q4

REPORT INFORMATION
  Report Type: 
  Country: None (occurrence: None)
  Receive Date: 20081007
  Receipt Date: 20080925
  Transmission Date: 20090506
  Serious: No
  Sender: FDA-Public Use
  Company Number: US-B.I. PHARMACEUTICALS,INC./RIDGEFIELD-2007-BP-11496BP

PATIENT
  Sex: Female
  Weight: 95 kg

DRUGS (7)
  1. MIRAPEX [Suspect]
     Indication: RESTLESS LEGS SYNDROME
     Dates: start: 20010401
  2. COUMADIN [Concomitant]
     Indication: CEREBROVASCULAR ACCIDENT
     Dates: start: 20030201
  3. PAXIL [Concomitant]
     Indication: PANIC ATTACK
     Dosage: 20MG
     Dates: start: 20050323
  4. DITROPAN XL [Concomitant]
     Dosage: 10MG
     Dates: start: 20030301
  5. PREMARIN [Concomitant]
     Dates: start: 20010401
  6. HYDROCODONE BITARTRATE [Concomitant]
     Indication: PAIN
     Dates: start: 20021201
  7. OXYTROL [Concomitant]
     Dates: start: 20040102

REACTIONS (4)
  - ANXIETY [None]
  - EMOTIONAL DISTRESS [None]
  - PAIN [None]
  - PATHOLOGICAL GAMBLING [None]
